FAERS Safety Report 14652476 (Version 2)
Quarter: 2018Q2

REPORT INFORMATION
  Report Type: Report from Study
  Country: None (occurrence: CA)
  Receive Date: 20180318
  Receipt Date: 20180413
  Transmission Date: 20180711
  Serious: Yes (Death, Hospitalization, Other)
  Sender: FDA-Public Use
  Company Number: CA-ABBVIE-18K-028-2292413-00

PATIENT
  Age: 60 Year
  Sex: Male

DRUGS (2)
  1. VITAMIN D [Concomitant]
     Active Substance: CHOLECALCIFEROL
     Indication: PRODUCT USED FOR UNKNOWN INDICATION
  2. HUMIRA [Suspect]
     Active Substance: ADALIMUMAB
     Indication: PSORIATIC ARTHROPATHY
     Route: 058
     Dates: start: 201007, end: 201801

REACTIONS (8)
  - Epstein-Barr virus associated lymphoma [Fatal]
  - Lung infiltration [Unknown]
  - Rash maculo-papular [Unknown]
  - Myelitis [Unknown]
  - Pyrexia [Unknown]
  - Muscular weakness [Unknown]
  - Lymphocytosis [Unknown]
  - Neurological decompensation [Unknown]

NARRATIVE: CASE EVENT DATE: 201712
